FAERS Safety Report 4648029-2 (Version None)
Quarter: 2005Q2

REPORT INFORMATION
  Report Type: 
  Country: None (occurrence: None)
  Receive Date: 20050428
  Receipt Date: 20050111
  Transmission Date: 20051028
  Serious: Yes (Life-Threatening, Hospitalization, Disabling)
  Sender: FDA-Public Use
  Company Number: US-MERCK-0501USA00999

PATIENT
  Age: 52 Year
  Sex: Male
  Weight: 94 kg

DRUGS (9)
  1. VIOXX [Suspect]
     Indication: ARTHRITIS
     Route: 048
     Dates: start: 20020313, end: 20040101
  2. VIOXX [Suspect]
     Indication: PAIN
     Route: 048
     Dates: start: 20020313, end: 20040101
  3. AMITRIPTYLINE HYDROCHLORIDE [Concomitant]
     Route: 065
  4. LASIX [Concomitant]
     Route: 065
  5. OXYCONTIN [Concomitant]
     Route: 065
  6. NITROSTAT [Concomitant]
     Route: 065
  7. MOBIC [Concomitant]
     Route: 065
  8. [THERAPY UNSPECIFIED] [Concomitant]
     Route: 065
  9. NEURONTIN [Concomitant]
     Route: 065

REACTIONS (13)
  - ANEURYSM [None]
  - ASTHENIA [None]
  - BALANCE DISORDER [None]
  - CAROTID ARTERY ANEURYSM [None]
  - CEREBRAL HAEMANGIOMA [None]
  - CEREBROVASCULAR ACCIDENT [None]
  - FALL [None]
  - HEART RATE INCREASED [None]
  - LOSS OF CONSCIOUSNESS [None]
  - MYOCARDIAL INFARCTION [None]
  - NECK PAIN [None]
  - PAIN [None]
  - SYNCOPE [None]
